FAERS Safety Report 7391761-0 (Version None)
Quarter: 2011Q2

REPORT INFORMATION
  Report Type: 
  Country: None (occurrence: None)
  Receive Date: 20110404
  Receipt Date: 20110328
  Transmission Date: 20111010
  Serious: Yes (Life-Threatening, Other)
  Sender: FDA-Public Use
  Company Number: JP-ROCHE-753772

PATIENT
  Sex: Male
  Weight: 64 kg

DRUGS (6)
  1. FLUOROURACIL [Suspect]
     Indication: COLON CANCER METASTATIC
     Dosage: ROUTE: INTRAVENOUS BOLUS, DOSAGE IS UNCERTAIN.
     Route: 041
  2. AVASTIN [Suspect]
     Indication: COLON CANCER METASTATIC
     Dosage: DOSAGE IS UNCERTAIN
     Route: 041
     Dates: start: 20101019, end: 20101129
  3. LEVOFOLINATE [Suspect]
     Indication: COLON CANCER METASTATIC
     Dosage: DOSAGE IS UNCERTAIN.
     Route: 041
  4. GASTER [Concomitant]
  5. ELPLAT [Suspect]
     Indication: COLON CANCER METASTATIC
     Dosage: DOSAGE IS UNCERTAIN.
     Route: 041
  6. FLUOROURACIL [Suspect]
     Dosage: ROUTE: INTRAVENOUS DRIP, DOSAGE IS UNCERTAIN.
     Route: 041

REACTIONS (3)
  - ILEAL PERFORATION [None]
  - ILEAL STENOSIS [None]
  - ABSCESS INTESTINAL [None]
